FAERS Safety Report 24402334 (Version 1)
Quarter: 2024Q4

REPORT INFORMATION
  Report Type: Spontaneous
  Country: US (occurrence: US)
  Receive Date: 20241007
  Receipt Date: 20241007
  Transmission Date: 20250115
  Serious: No
  Sender: JOHNSON AND JOHNSON
  Company Number: US-JNJFOC-20241012332

PATIENT
  Age: 32 Year

DRUGS (18)
  1. FAMOTIDINE [Suspect]
     Active Substance: FAMOTIDINE
     Indication: Feeling hot
     Route: 065
     Dates: start: 202409
  2. FAMOTIDINE [Suspect]
     Active Substance: FAMOTIDINE
     Indication: Skin irritation
  3. FAMOTIDINE [Suspect]
     Active Substance: FAMOTIDINE
     Indication: Erythema
  4. FAMOTIDINE [Suspect]
     Active Substance: FAMOTIDINE
     Indication: Swelling face
  5. FAMOTIDINE [Suspect]
     Active Substance: FAMOTIDINE
     Indication: Rash
  6. FAMOTIDINE [Suspect]
     Active Substance: FAMOTIDINE
     Indication: Pruritus
  7. PREDNISONE [Concomitant]
     Active Substance: PREDNISONE
     Indication: Feeling hot
     Route: 065
  8. PREDNISONE [Concomitant]
     Active Substance: PREDNISONE
     Indication: Skin irritation
  9. PREDNISONE [Concomitant]
     Active Substance: PREDNISONE
     Indication: Erythema
  10. PREDNISONE [Concomitant]
     Active Substance: PREDNISONE
     Indication: Swelling face
  11. PREDNISONE [Concomitant]
     Active Substance: PREDNISONE
     Indication: Rash
  12. PREDNISONE [Concomitant]
     Active Substance: PREDNISONE
     Indication: Pruritus
  13. BENADRYL [Concomitant]
     Active Substance: DIPHENHYDRAMINE HYDROCHLORIDE
     Indication: Feeling hot
     Route: 065
  14. BENADRYL [Concomitant]
     Active Substance: DIPHENHYDRAMINE HYDROCHLORIDE
     Indication: Skin irritation
  15. BENADRYL [Concomitant]
     Active Substance: DIPHENHYDRAMINE HYDROCHLORIDE
     Indication: Erythema
  16. BENADRYL [Concomitant]
     Active Substance: DIPHENHYDRAMINE HYDROCHLORIDE
     Indication: Swelling face
  17. BENADRYL [Concomitant]
     Active Substance: DIPHENHYDRAMINE HYDROCHLORIDE
     Indication: Rash
  18. BENADRYL [Concomitant]
     Active Substance: DIPHENHYDRAMINE HYDROCHLORIDE
     Indication: Pruritus

REACTIONS (1)
  - Off label use [Unknown]

NARRATIVE: CASE EVENT DATE: 20240901
